FAERS Safety Report 6409504-3 (Version None)
Quarter: 2009Q4

REPORT INFORMATION
  Report Type: 
  Country: None (occurrence: None)
  Receive Date: 20091019
  Receipt Date: 20091006
  Transmission Date: 20100525
  Serious: Yes (Hospitalization)
  Sender: FDA-Public Use
  Company Number: 8052640

PATIENT
  Age: 23 Year
  Sex: Male

DRUGS (1)
  1. CIMZIA [Suspect]
     Indication: CROHN'S DISEASE
     Dosage: 400 MG SC
     Route: 058
     Dates: start: 20090919

REACTIONS (5)
  - ABDOMINAL PAIN [None]
  - CONVULSION [None]
  - DIARRHOEA [None]
  - NAUSEA [None]
  - VOMITING [None]
